FAERS Safety Report 5153414-9 (Version None)
Quarter: 2006Q4

REPORT INFORMATION
  Report Type: 
  Country: None (occurrence: None)
  Receive Date: 20061114
  Receipt Date: 20061026
  Transmission Date: 20070319
  Serious: Yes (Hospitalization)
  Sender: FDA-Public Use
  Company Number: 30476

PATIENT
  Age: 70 Year
  Sex: Male

DRUGS (1)
  1. IMIQUIMOD [Suspect]
     Indication: ACTINIC KERATOSIS
     Dosage: 3 UNPSEC., 3 IN 1 WEEK(S)
     Route: 061

REACTIONS (6)
  - ACCIDENTAL OVERDOSE [None]
  - APPLICATION SITE EROSION [None]
  - BACTERIAL INFECTION [None]
  - ECTROPION [None]
  - INAPPROPRIATE SCHEDULE OF DRUG ADMINISTRATION [None]
  - KERATITIS [None]
